FAERS Safety Report 5976105-0 (Version None)
Quarter: 2008Q4

REPORT INFORMATION
  Report Type: 
  Country: None (occurrence: None)
  Receive Date: 20081202
  Receipt Date: 20071218
  Transmission Date: 20090506
  Serious: Yes (Hospitalization)
  Sender: FDA-Public Use
  Company Number: US-BRISTOL-MYERS SQUIBB COMPANY-14402739

PATIENT
  Age: 77 Year
  Sex: Female
  Weight: 80 kg

DRUGS (16)
  1. CETUXIMAB [Suspect]
     Indication: NON-SMALL CELL LUNG CANCER METASTATIC
     Dosage: CHIMERIC ANTI-EGFR MAB
     Route: 042
     Dates: start: 20070924, end: 20070924
  2. DOCETAXEL [Suspect]
     Indication: NON-SMALL CELL LUNG CANCER METASTATIC
     Route: 042
     Dates: start: 20070924, end: 20070924
  3. DIFLUCAN [Concomitant]
     Indication: MUCOSAL INFLAMMATION
     Route: 048
     Dates: start: 20070929, end: 20071001
  4. LEVAQUIN [Concomitant]
     Indication: MUCOSAL INFLAMMATION
     Dosage: 1 DOSAGEFORM = 1 TAB
     Route: 048
     Dates: start: 20070929
  5. PHENERGAN HCL [Concomitant]
     Indication: NAUSEA
     Dosage: Q6H PRN
     Route: 054
     Dates: start: 20070929
  6. ZOFRAN [Concomitant]
     Dosage: 4MG Q6H PRN
     Route: 048
     Dates: start: 20070929
  7. ATROVENT [Concomitant]
     Route: 065
  8. ALBUTEROL [Concomitant]
     Route: 065
  9. FOSAMAX [Concomitant]
     Route: 065
  10. LISINOPRIL [Concomitant]
     Route: 065
  11. LOVASTATIN [Concomitant]
     Route: 065
  12. PROTONIX [Concomitant]
     Route: 065
  13. PREDNISONE TAB [Concomitant]
     Route: 065
  14. ZANTAC [Concomitant]
     Route: 065
  15. DECADRON [Concomitant]
     Route: 065
  16. DARVOCET-N 100 [Concomitant]
     Route: 065

REACTIONS (3)
  - DEHYDRATION [None]
  - FEBRILE NEUTROPENIA [None]
  - ORAL CANDIDIASIS [None]
